FAERS Safety Report 20186672 (Version 1)
Quarter: 2021Q4

REPORT INFORMATION
  Report Type: Spontaneous
  Country: US (occurrence: US)
  Receive Date: 20211215
  Receipt Date: 20211215
  Transmission Date: 20220303
  Serious: Yes (Other)
  Sender: FDA-Public Use
  Company Number: US-SUN PHARMACEUTICAL INDUSTRIES LTD-2021R1-320605

PATIENT
  Age: 74 Year
  Sex: Female

DRUGS (3)
  1. METRONIDAZOLE [Suspect]
     Active Substance: METRONIDAZOLE
     Indication: Giardiasis
     Dosage: UNK
     Route: 065
  2. PAROMOMYCIN [Suspect]
     Active Substance: PAROMOMYCIN
     Indication: Giardiasis
     Dosage: UNK
     Route: 065
  3. MEMANTINE [Suspect]
     Active Substance: MEMANTINE
     Indication: Giardiasis
     Dosage: UNK
     Route: 065

REACTIONS (2)
  - Drug ineffective [Unknown]
  - Drug-induced liver injury [Recovering/Resolving]
